FAERS Safety Report 12531969 (Version 2)
Quarter: 2016Q3

REPORT INFORMATION
  Report Type: Spontaneous
  Country: IL (occurrence: IL)
  Receive Date: 20160706
  Receipt Date: 20160711
  Transmission Date: 20161109
  Serious: Yes (Life-Threatening, Other)
  Sender: FDA-Public Use
  Company Number: IL-ASTRAZENECA-2016SE71394

PATIENT
  Age: 74 Year
  Sex: Female

DRUGS (6)
  1. FORXIGA [Suspect]
     Active Substance: DAPAGLIFLOZIN
     Indication: TYPE 2 DIABETES MELLITUS
     Route: 048
     Dates: start: 201601
  2. LIPITOR [Concomitant]
     Active Substance: ATORVASTATIN CALCIUM
  3. AGGRENOX [Concomitant]
     Active Substance: ASPIRIN\DIPYRIDAMOLE
  4. LOSARTAN. [Concomitant]
     Active Substance: LOSARTAN
  5. GLUCO-RITE [Concomitant]
     Active Substance: GLIPIZIDE
  6. OMEPRADEX [Concomitant]
     Active Substance: OMEPRAZOLE

REACTIONS (4)
  - Cerebrovascular accident [Unknown]
  - Proteinuria [Unknown]
  - Monoclonal gammopathy [Unknown]
  - Hypertension [Unknown]

NARRATIVE: CASE EVENT DATE: 201601
